FAERS Safety Report 8564362 (Version 3)
Quarter: 2013Q2

REPORT INFORMATION
  Report Type: Spontaneous
  Country: US (occurrence: US)
  Receive Date: 20120516
  Receipt Date: 20130619
  Transmission Date: 20140414
  Serious: No
  Sender: FDA-Public Use
  Company Number: US-PFIZER INC-2012114239

PATIENT
  Age: 62 Year
  Sex: Female

DRUGS (25)
  1. AZITHROMYCIN [Suspect]
     Dosage: UNK
  2. DAYPRO [Suspect]
     Dosage: UNK
  3. LINCOCIN [Suspect]
     Dosage: UNK
  4. BENZYLPENICILLIN POTASSIUM [Suspect]
     Dosage: UNK
  5. SKELAXIN [Suspect]
     Dosage: UNK
  6. CIPROFLOXACIN [Suspect]
     Dosage: UNK
  7. METHOTREXATE SODIUM [Suspect]
     Dosage: UNK
  8. LYRICA [Suspect]
     Dosage: UNK
  9. ERYTHROMYCIN [Suspect]
     Dosage: UNK
  10. PREDNISONE [Suspect]
     Dosage: UNK
  11. TETRACYCLINE HYDROCHLORIDE [Suspect]
     Dosage: UNK
  12. CEFTIN [Suspect]
     Dosage: UNK
  13. CHLOROQUINE [Suspect]
     Dosage: UNK
  14. CLARITIN-D [Suspect]
     Dosage: UNK
  15. CHONDROITIN/GLUCOSAMINE [Suspect]
     Dosage: UNK
  16. MOBIC [Suspect]
     Dosage: UNK
  17. PARAFON FORTE [Suspect]
     Dosage: UNK
  18. PLAQUENIL [Suspect]
     Dosage: UNK
  19. SUDAFED [Suspect]
     Dosage: UNK
  20. ULTRAM [Suspect]
     Dosage: UNK
  21. CIPRO [Suspect]
     Dosage: UNK
  22. CYMBALTA [Suspect]
     Dosage: UNK
  23. TOPIRAMATE [Suspect]
     Dosage: UNK
  24. TRIHEXYPHENIDYL HYDROCHLORIDE [Suspect]
     Dosage: UNK
  25. PHENYLEPHRINE HYDROCHLORIDE [Suspect]
     Dosage: UNK

REACTIONS (1)
  - Drug hypersensitivity [Unknown]
